FAERS Safety Report 13464000 (Version 1)
Quarter: 2017Q2

REPORT INFORMATION
  Report Type: Spontaneous
  Country: US (occurrence: US)
  Receive Date: 20170420
  Receipt Date: 20170420
  Transmission Date: 20170830
  Serious: Yes (Other)
  Sender: FDA-Public Use
  Company Number: US-ROCHE-717475

PATIENT
  Age: 14 Year
  Sex: Male
  Weight: 83.9 kg

DRUGS (3)
  1. ACCUTANE [Suspect]
     Active Substance: ISOTRETINOIN
     Indication: ACNE
     Route: 065
     Dates: start: 20040723, end: 20040821
  2. ACCUTANE [Suspect]
     Active Substance: ISOTRETINOIN
     Route: 065
     Dates: start: 20040917, end: 20041130
  3. CLARAVIS [Suspect]
     Active Substance: ISOTRETINOIN
     Indication: ACNE
     Route: 065
     Dates: start: 20040830, end: 20040916

REACTIONS (12)
  - Back pain [Recovering/Resolving]
  - Inflammatory bowel disease [Unknown]
  - Eczema [Unknown]
  - Lip dry [Unknown]
  - Blood cholesterol increased [Recovered/Resolved]
  - Xerosis [Unknown]
  - Blood triglycerides increased [Recovering/Resolving]
  - Epistaxis [Unknown]
  - Sunburn [Unknown]
  - Colitis ulcerative [Unknown]
  - Depression [Unknown]
  - Cheilitis [Unknown]

NARRATIVE: CASE EVENT DATE: 20040817
